FAERS Safety Report 8117274-6 (Version None)
Quarter: 2012Q1

REPORT INFORMATION
  Report Type: 
  Country: None (occurrence: None)
  Receive Date: 20120206
  Receipt Date: 20120131
  Transmission Date: 20120608
  Serious: Yes (Other)
  Sender: FDA-Public Use
  Company Number: NL-AMGEN-NLDSP2012002448

PATIENT
  Age: 40 Year
  Sex: Female
  Weight: 114 kg

DRUGS (4)
  1. NEULASTA [Suspect]
     Indication: PRODUCT USED FOR UNKNOWN INDICATION
     Dosage: 0.6 ML, UNK
     Route: 058
     Dates: start: 20110617, end: 20110618
  2. DOXORUBICIN HCL [Concomitant]
     Indication: BREAST CANCER
     Dosage: UNK
     Route: 042
     Dates: start: 20110616, end: 20110617
  3. CYCLOPHOSPHAMIDE [Concomitant]
     Indication: BREAST CANCER
     Dosage: UNK
     Route: 042
     Dates: start: 20110616, end: 20110617
  4. GRANISETRON [Concomitant]
     Indication: NAUSEA
     Dosage: UNK
     Route: 048
     Dates: start: 20110616, end: 20110618

REACTIONS (7)
  - WHEEZING [None]
  - EYE OEDEMA [None]
  - HYPERSENSITIVITY [None]
  - EYE DISORDER [None]
  - DYSPNOEA [None]
  - NASAL CONGESTION [None]
  - BLISTER [None]
